FAERS Safety Report 24753842 (Version 1)
Quarter: 2024Q4

REPORT INFORMATION
  Report Type: Spontaneous
  Country: CN (occurrence: CN)
  Receive Date: 20241219
  Receipt Date: 20241219
  Transmission Date: 20250115
  Serious: Yes (Other)
  Sender: MERCK
  Company Number: CN-009507513-2412CHN006603

PATIENT
  Age: 61 Year
  Sex: Male

DRUGS (3)
  1. TEMODAL [Suspect]
     Active Substance: TEMOZOLOMIDE
     Indication: Glioblastoma
     Dosage: 75MG/M2/D, D1-42 (CYCLICAL)
     Route: 048
     Dates: start: 20181010, end: 20181120
  2. TEMODAL [Suspect]
     Active Substance: TEMOZOLOMIDE
     Dosage: FIRST CYCLE WAS 150 MG/M2/DAY, ONCE A DAY FOR 5 DAYS
     Route: 048
  3. TEMODAL [Suspect]
     Active Substance: TEMOZOLOMIDE
     Dosage: 200 MG/M2/D, ONCE A DAY FOR 5 DAYS, THEN RESTED FOR 23 DAYS
     Route: 048

REACTIONS (2)
  - Recurrent cancer [Unknown]
  - Glioblastoma [Unknown]

NARRATIVE: CASE EVENT DATE: 20241203
